FAERS Safety Report 20804049 (Version 1)
Quarter: 2022Q2

REPORT INFORMATION
  Report Type: Spontaneous
  Country: US (occurrence: US)
  Receive Date: 20220509
  Receipt Date: 20220509
  Transmission Date: 20220721
  Serious: No
  Sender: FDA-Public Use
  Company Number: US-PFIZER INC-202200412057

PATIENT
  Age: 57 Year
  Sex: Male

DRUGS (1)
  1. INLYTA [Suspect]
     Active Substance: AXITINIB
     Dosage: UNK
     Dates: end: 20220313

REACTIONS (5)
  - Muscle spasms [Unknown]
  - Back injury [Unknown]
  - Head discomfort [Unknown]
  - Ear discomfort [Unknown]
  - Balance disorder [Unknown]
